FAERS Safety Report 18538533 (Version 2)
Quarter: 2020Q4

REPORT INFORMATION
  Report Type: Spontaneous
  Country: PT (occurrence: PT)
  Receive Date: 20201123
  Receipt Date: 20201225
  Transmission Date: 20210114
  Serious: Yes (Hospitalization, Other)
  Sender: FDA-Public Use
  Company Number: PT-ROCHE-2716348

PATIENT
  Age: 65 Year
  Sex: Female

DRUGS (13)
  1. NINTEDANIB [Suspect]
     Active Substance: NINTEDANIB
     Dosage: 200MG 2X/DAY
     Route: 065
     Dates: start: 20190701
  2. BRIGATINIB [Concomitant]
     Active Substance: BRIGATINIB
     Dates: start: 20180901
  3. DOCETAXEL. [Concomitant]
     Active Substance: DOCETAXEL
  4. LORLATINIB [Suspect]
     Active Substance: LORLATINIB
     Indication: LUNG ADENOCARCINOMA
     Route: 065
     Dates: start: 20191001
  5. INDAPAMIDE. [Concomitant]
     Active Substance: INDAPAMIDE
  6. KEPPRA [Concomitant]
     Active Substance: LEVETIRACETAM
  7. ALECTINIB. [Suspect]
     Active Substance: ALECTINIB
     Indication: LUNG ADENOCARCINOMA
     Route: 065
     Dates: start: 20170801
  8. DOCETAXEL. [Concomitant]
     Active Substance: DOCETAXEL
     Dates: start: 20190701
  9. LORLATINIB [Suspect]
     Active Substance: LORLATINIB
     Route: 065
  10. ALECTINIB. [Suspect]
     Active Substance: ALECTINIB
     Route: 065
  11. ALPRAZOLAM. [Concomitant]
     Active Substance: ALPRAZOLAM
  12. NINTEDANIB [Suspect]
     Active Substance: NINTEDANIB
     Indication: PRODUCT USED FOR UNKNOWN INDICATION
     Route: 065
  13. BRIGATINIB [Concomitant]
     Active Substance: BRIGATINIB

REACTIONS (18)
  - Face oedema [Not Recovered/Not Resolved]
  - Hepatic lesion [Unknown]
  - Rash [Unknown]
  - Jaundice [Unknown]
  - Neoplasm progression [Unknown]
  - Ascites [Unknown]
  - Hepatic lesion [Unknown]
  - Alopecia [Unknown]
  - Toxic skin eruption [Unknown]
  - Hypercholesterolaemia [Unknown]
  - Encephalopathy [Unknown]
  - Hypercholesterolaemia [Unknown]
  - Decreased appetite [Unknown]
  - Diarrhoea [Unknown]
  - Nausea [Unknown]
  - Disease progression [Unknown]
  - Transaminases increased [Unknown]
  - Liver disorder [Unknown]

NARRATIVE: CASE EVENT DATE: 201806
